FAERS Safety Report 8925783 (Version 2)
Quarter: 2012Q4

REPORT INFORMATION
  Report Type: 
  Country: US (occurrence: US)
  Receive Date: 20121126
  Receipt Date: 20121127
  Transmission Date: 20130627
  Serious: Yes (Other)
  Sender: FDA-Public Use
  Company Number: US-ABBOTT-12P-163-1009521-00

PATIENT
  Age: 70 Year
  Sex: Male

DRUGS (6)
  1. VICODIN [Suspect]
     Indication: PAIN
  2. GABAPENTIN [Suspect]
     Indication: PAIN
  3. PERCOCET [Suspect]
     Indication: PAIN
  4. UNSPECIFIED PAIN KILLERS [Suspect]
     Indication: PRODUCT USED FOR UNKNOWN INDICATION
  5. ADVIL [Concomitant]
     Indication: PRODUCT USED FOR UNKNOWN INDICATION
  6. IBUPROFEN [Concomitant]
     Indication: PRODUCT USED FOR UNKNOWN INDICATION

REACTIONS (9)
  - Lung neoplasm malignant [Unknown]
  - Malaise [Unknown]
  - Somnolence [Unknown]
  - Dizziness [Unknown]
  - Dyskinesia [Unknown]
  - Amnesia [Unknown]
  - Fatigue [Unknown]
  - Coordination abnormal [Unknown]
  - Adverse reaction [Unknown]
